FAERS Safety Report 4855949-2 (Version None)
Quarter: 2005Q4

REPORT INFORMATION
  Report Type: 
  Country: None (occurrence: None)
  Receive Date: 20051214
  Receipt Date: 20051208
  Transmission Date: 20060501
  Serious: Yes (Hospitalization, Other)
  Sender: FDA-Public Use
  Company Number: US-2005-017808

PATIENT
  Age: 63 Year
  Sex: Female
  Weight: 81.6 kg

DRUGS (15)
  1. CLIMARA [Suspect]
     Indication: HORMONE REPLACEMENT THERAPY
     Dosage: MG/D, CONT, TRANSDERMAL
     Route: 062
     Dates: start: 19990101, end: 20000101
  2. PREMPRO [Suspect]
     Indication: HOT FLUSH
     Dates: start: 19980101, end: 19990701
  3. PREMARIN [Suspect]
     Indication: HOT FLUSH
     Dates: start: 19600101, end: 20010101
  4. PREMARIN [Suspect]
     Indication: HOT FLUSH
     Dates: start: 19990101
  5. PROVERA [Suspect]
     Indication: HOT FLUSH
     Dates: start: 19600101, end: 19980101
  6. PROVERA [Suspect]
     Indication: HOT FLUSH
     Dates: start: 19990101, end: 20010101
  7. MEDROXYPROGESTERONE ACETATE [Suspect]
     Indication: HOT FLUSH
     Dosage: 5 MG
     Dates: start: 19990901, end: 20000901
  8. ACTIVELLA [Suspect]
     Indication: HOT FLUSH
     Dates: start: 20020101, end: 20030701
  9. NIASPAN [Concomitant]
  10. LIPITOR [Concomitant]
  11. TOPROL-XL [Concomitant]
  12. ZETIA [Concomitant]
  13. ECOTRIN (ACETYLSALICYLIC ACID) [Concomitant]
  14. SYNTHROID [Concomitant]
  15. ZOLOFT [Concomitant]

REACTIONS (7)
  - BREAST CANCER FEMALE [None]
  - DEFORMITY [None]
  - EMOTIONAL DISTRESS [None]
  - INJURY [None]
  - MARITAL PROBLEM [None]
  - PAIN [None]
  - SEXUAL DYSFUNCTION [None]
